FAERS Safety Report 7878898-4 (Version None)
Quarter: 2011Q4

REPORT INFORMATION
  Report Type: 
  Country: None (occurrence: None)
  Receive Date: 20111025
  Receipt Date: 20110217
  Transmission Date: 20120403
  Serious: Yes (Other)
  Sender: FDA-Public Use
  Company Number: 2011BH004043

PATIENT
  Age: 11 Month
  Sex: Male

DRUGS (2)
  1. ADVATE [Suspect]
     Indication: PROPHYLAXIS
     Dosage: 500 IU;2X A WEEK
     Dates: start: 20070120, end: 20071219
  2. WHOLE BLOOD [Concomitant]

REACTIONS (1)
  - FACTOR VIII INHIBITION [None]
